FAERS Safety Report 8836273 (Version 1)
Quarter: 2012Q4

REPORT INFORMATION
  Report Type: Report from Study
  Country: CA (occurrence: CA)
  Receive Date: 20121011
  Receipt Date: 20121011
  Transmission Date: 20130627
  Serious: Yes (Hospitalization)
  Sender: FDA-Public Use
  Company Number: CA-PFIZER INC-2012251803

PATIENT
  Age: 27 Year
  Sex: Female
  Weight: 71 kg

DRUGS (1)
  1. SUTENT [Suspect]
     Indication: CERVIX CANCER METASTATIC
     Dosage: 50 mg, cyclic daily x 4 weeks
     Route: 048
     Dates: start: 20070612, end: 20070709

REACTIONS (4)
  - Vaginal haemorrhage [Recovering/Resolving]
  - Haemoglobin [Recovering/Resolving]
  - Vaginal fistula [Recovering/Resolving]
  - Hypokalaemia [Recovered/Resolved]
